FAERS Safety Report 8243905-6 (Version None)
Quarter: 2012Q1

REPORT INFORMATION
  Report Type: 
  Country: None (occurrence: None)
  Receive Date: 20120329
  Receipt Date: 20110613
  Transmission Date: 20120608
  Serious: No
  Sender: FDA-Public Use
  Company Number: US-MYLANLABS-2011S1009401

PATIENT
  Age: 91 Year
  Sex: Female

DRUGS (6)
  1. HYDROCHLOROTHIAZIDE [Concomitant]
  2. LORAZEPAM [Concomitant]
     Dosage: 1/2 TABLET AT BED TIME
     Route: 048
  3. ESTRADIOL [Suspect]
     Indication: HORMONE REPLACEMENT THERAPY
     Dosage: QW
     Route: 062
     Dates: start: 20110401
  4. SENOKOT [Concomitant]
  5. ACETAZOLAMIDE [Concomitant]
  6. LOSARTAN POTASSIUM [Concomitant]

REACTIONS (3)
  - INCORRECT DOSE ADMINISTERED [None]
  - DRUG EFFECT DECREASED [None]
  - INSOMNIA [None]
